FAERS Safety Report 7880753 (Version 4)
Quarter: 2013Q1

REPORT INFORMATION
  Report Type: Spontaneous
  Country: US (occurrence: US)
  Receive Date: 20110331
  Receipt Date: 20130225
  Transmission Date: 20140127
  Serious: Yes (Hospitalization)
  Sender: FDA-Public Use
  Company Number: US-BAYER-2011-026936

PATIENT
  Age: 26 Year
  Sex: Female
  Weight: 63.95 kg

DRUGS (1)
  1. YASMIN [Suspect]
     Dosage: UNK
     Dates: start: 200201, end: 2004

REACTIONS (7)
  - Cerebrovascular accident [None]
  - Pain [None]
  - Injury [None]
  - General physical health deterioration [None]
  - Anxiety [None]
  - Anhedonia [None]
  - Emotional distress [None]
